FAERS Safety Report 10188209 (Version 5)
Quarter: 2015Q2

REPORT INFORMATION
  Report Type: Spontaneous
  Country: CH (occurrence: CH)
  Receive Date: 20140522
  Receipt Date: 20150527
  Transmission Date: 20150821
  Serious: Yes (Other)
  Sender: FDA-Public Use
  Company Number: CH-PFIZER INC-2014101880

PATIENT
  Age: 24 Year
  Sex: Female

DRUGS (1)
  1. SAYANA [Suspect]
     Active Substance: MEDROXYPROGESTERONE
     Indication: CHEMICAL CONTRACEPTION
     Dosage: 104 MG, UNK
     Route: 058
     Dates: start: 20131121

REACTIONS (3)
  - Injection site reaction [Not Recovered/Not Resolved]
  - Sleep disorder [Recovered/Resolved]
  - Injection site atrophy [Not Recovered/Not Resolved]

NARRATIVE: CASE EVENT DATE: 20140107
